FAERS Safety Report 23771408 (Version 1)
Quarter: 2024Q2

REPORT INFORMATION
  Report Type: Report from Study
  Country: US (occurrence: None)
  Receive Date: 20240423
  Receipt Date: 20240423
  Transmission Date: 20240716
  Serious: Yes (Hospitalization)
  Sender: FDA-Public Use
  Company Number: 2024A092547

PATIENT
  Age: 64 Year
  Sex: Female
  Weight: 106.1 kg

DRUGS (1)
  1. CALQUENCE [Suspect]
     Active Substance: ACALABRUTINIB
     Indication: Mantle cell lymphoma
     Route: 048

REACTIONS (2)
  - Pain [Recovering/Resolving]
  - Abdominal discomfort [Not Recovered/Not Resolved]
